FAERS Safety Report 4800511-0 (Version None)
Quarter: 2005Q4

REPORT INFORMATION
  Report Type: 
  Country: None (occurrence: None)
  Receive Date: 20051005
  Receipt Date: 20050907
  Transmission Date: 20060501
  Serious: Yes (Death)
  Sender: FDA-Public Use
  Company Number: 2005BH002072

PATIENT

DRUGS (6)
  1. VINORELBINE TARTRATE [Suspect]
     Indication: NON-SMALL CELL LUNG CANCER
     Dosage: 25 MG/M**2; IV
     Route: 042
  2. GEMCITABINE (GEMCITABINE) [Suspect]
     Indication: NON-SMALL CELL LUNG CANCER
     Dosage: 1000 MG/M**2; IV
     Route: 042
  3. METOCLOPRAMIDE [Concomitant]
  4. DEXAMETHASONE [Concomitant]
  5. HT3-ANTAGONIST [Concomitant]
  6. NORMAL SALINE [Concomitant]

REACTIONS (1)
  - SEPSIS [None]
